FAERS Safety Report 9223544 (Version 1)
Quarter: 2013Q2

REPORT INFORMATION
  Report Type: Spontaneous
  Country: IT (occurrence: IT)
  Receive Date: 20130410
  Receipt Date: 20130410
  Transmission Date: 20140414
  Serious: Yes (Other)
  Sender: FDA-Public Use
  Company Number: IT-ABBOTT-13X-083-1072817-00

PATIENT
  Age: 44 Year
  Sex: Male

DRUGS (2)
  1. MACLADIN [Suspect]
     Indication: INFECTION
     Route: 048
     Dates: start: 20121202, end: 20121202
  2. AUGMENTIN [Suspect]
     Indication: INFECTION
     Dosage: FORM STRENGTH: 875 MG/125 MG
     Route: 048
     Dates: start: 20121202, end: 20121202

REACTIONS (1)
  - Erythema [Recovered/Resolved]
